FAERS Safety Report 9168111 (Version 1)
Quarter: 2013Q1

REPORT INFORMATION
  Report Type: Spontaneous
  Country: US (occurrence: None)
  Receive Date: 20130225
  Receipt Date: 20130225
  Transmission Date: 20140127
  Serious: Yes (Hospitalization)
  Sender: FDA-Public Use
  Company Number: 2013034725

PATIENT
  Age: 45 Year
  Sex: Female
  Weight: 54.43 kg

DRUGS (1)
  1. HIZENTRA [Suspect]
     Route: 058
     Dates: start: 201301

REACTIONS (2)
  - Meningism [None]
  - Headache [None]
